FAERS Safety Report 15236915 (Version 1)
Quarter: 2018Q3

REPORT INFORMATION
  Report Type: Spontaneous
  Country: US (occurrence: US)
  Receive Date: 20180803
  Receipt Date: 20180803
  Transmission Date: 20181010
  Serious: No
  Sender: FDA-Public Use
  Company Number: US-SA-2018SA137902

PATIENT
  Age: 60 Year
  Sex: Female

DRUGS (1)
  1. DUPIXENT [Suspect]
     Active Substance: DUPILUMAB
     Indication: DERMATITIS ATOPIC
     Dosage: 300 MG,QOW
     Route: 058
     Dates: start: 201803

REACTIONS (7)
  - Pruritus [Recovered/Resolved]
  - Blood blister [Unknown]
  - Eczema [Recovered/Resolved]
  - Burning sensation [Recovered/Resolved]
  - Scratch [Unknown]
  - Dermatitis [Unknown]
  - Pain [Recovered/Resolved]
